FAERS Safety Report 18020378 (Version 1)
Quarter: 2020Q3

REPORT INFORMATION
  Report Type: Spontaneous
  Country: DE (occurrence: DE)
  Receive Date: 20200714
  Receipt Date: 20200714
  Transmission Date: 20201103
  Serious: Yes (Hospitalization, Other)
  Sender: FDA-Public Use
  Company Number: DE-PFIZER INC-2020265550

PATIENT
  Age: 34 Year
  Sex: Female
  Weight: 66 kg

DRUGS (1)
  1. CYTOTEC [Suspect]
     Active Substance: MISOPROSTOL
     Indication: LABOUR INDUCTION
     Dosage: 25 MG, 2X/DAY
     Route: 048
     Dates: start: 20130324, end: 20130324

REACTIONS (6)
  - Circulatory collapse [Unknown]
  - Product use in unapproved indication [Unknown]
  - Postpartum haemorrhage [Unknown]
  - Off label use [Unknown]
  - Premature separation of placenta [Unknown]
  - Prolonged labour [Unknown]

NARRATIVE: CASE EVENT DATE: 20130324
